FAERS Safety Report 9571234 (Version 1)
Quarter: 2013Q3

REPORT INFORMATION
  Report Type: Spontaneous
  Country: US (occurrence: None)
  Receive Date: 20130927
  Receipt Date: 20130927
  Transmission Date: 20140515
  Serious: Yes (Disabling)
  Sender: FDA-Public Use
  Company Number: None

PATIENT
  Age: 56 Year
  Sex: Female
  Weight: 62.14 kg

DRUGS (1)
  1. LEVOFLOXACIN [Suspect]
     Dates: start: 20130311, end: 20130331

REACTIONS (5)
  - Pain [None]
  - Swelling [None]
  - Inflammation [None]
  - Muscular weakness [None]
  - Tendon disorder [None]
